FAERS Safety Report 24435522 (Version 1)
Quarter: 2024Q4

REPORT INFORMATION
  Report Type: Spontaneous
  Country: IT (occurrence: IT)
  Receive Date: 20241015
  Receipt Date: 20241015
  Transmission Date: 20250114
  Serious: Yes (Hospitalization)
  Sender: NOVARTIS
  Company Number: None

PATIENT
  Age: 50 Year
  Sex: Female

DRUGS (2)
  1. KISQALI [Suspect]
     Active Substance: RIBOCICLIB
     Indication: Breast cancer
     Dosage: 400 MG (DIE PER 21 GIORNI SU CICLI DI 28 GIORNI)
     Route: 048
     Dates: start: 20240412, end: 20240719
  2. FULVESTRANT EVER PHARMA [Concomitant]
     Indication: Breast cancer
     Dosage: 500 MG (IM OGNI 28 GIORNI)
     Route: 030

REACTIONS (1)
  - Transaminases increased [Recovered/Resolved]

NARRATIVE: CASE EVENT DATE: 20240719
